FAERS Safety Report 15306856 (Version 2)
Quarter: 2018Q3

REPORT INFORMATION
  Report Type: Report from Study
  Country: MX (occurrence: MX)
  Receive Date: 20180822
  Receipt Date: 20180907
  Transmission Date: 20181010
  Serious: Yes (Death, Hospitalization, Other)
  Sender: FDA-Public Use
  Company Number: PHHY2018MX075598

PATIENT
  Age: 84 Year
  Sex: Female
  Weight: 63 kg

DRUGS (5)
  1. METFORMINA + GLIBENCLAMIDA [Concomitant]
     Dosage: 2 DF, QD (AT BREAKFAST AND DINNER) (STARTED SINCE 3 MONTHS AGO STOPPED)
     Route: 048
  2. METFORMINA + GLIBENCLAMIDA [Concomitant]
     Indication: DIABETES MELLITUS
     Dosage: 2 DF, QD (AT BREAKFAST AND DINNER) (4 MONTHS AGO STOPPED)
     Route: 048
     Dates: start: 20110128
  3. CO?DIOVAN [Suspect]
     Active Substance: HYDROCHLOROTHIAZIDE\VALSARTAN
     Indication: BLOOD PRESSURE INCREASED
     Dosage: 1 DF, QD  12.5 MG HYDROCHLOROTHIAZIDE/160 MG VALSARTAN
     Route: 048
     Dates: start: 20110128
  4. XILIARXS?DUO [Suspect]
     Active Substance: METFORMIN HYDROCHLORIDE\VILDAGLIPTIN
     Indication: BLOOD GLUCOSE ABNORMAL
     Dosage: 1 DF, QD(SINCE 4 MONTHS AGO)
     Route: 048
  5. ASPIRIN PROTECT [Concomitant]
     Active Substance: ASPIRIN
     Indication: PROPHYLAXIS
     Dosage: 1 DF, QHS
     Route: 048
     Dates: start: 20110128

REACTIONS (11)
  - Pleural effusion [Fatal]
  - Fluid retention [Unknown]
  - Cardiomegaly [Unknown]
  - Cardiac failure [Fatal]
  - Kidney infection [Recovered/Resolved]
  - Cholelithiasis [Unknown]
  - Respiratory failure [Fatal]
  - Type 2 diabetes mellitus [Fatal]
  - Pneumonia [Fatal]
  - Oxygen saturation decreased [Recovered/Resolved]
  - Bacterial abdominal infection [Recovered/Resolved]

NARRATIVE: CASE EVENT DATE: 20180310
